FAERS Safety Report 7443403-3 (Version None)
Quarter: 2011Q2

REPORT INFORMATION
  Report Type: 
  Country: None (occurrence: None)
  Receive Date: 20110428
  Receipt Date: 20110427
  Transmission Date: 20111010
  Serious: Yes (Other)
  Sender: FDA-Public Use
  Company Number: US-PFIZER INC-2011091054

PATIENT
  Age: 66 Year
  Sex: Male
  Weight: 88.435 kg

DRUGS (6)
  1. DILTIAZEM [Concomitant]
     Indication: CREST SYNDROME
     Dosage: 180 MG, 2X/DAY
     Route: 048
  2. NEURONTIN [Suspect]
     Indication: PAIN IN EXTREMITY
  3. NEURONTIN [Suspect]
     Indication: CREST SYNDROME
     Dosage: 300MG, 4 TABLETS (1 IN MORNING AND 3 IN NIGHT)
     Dates: start: 20101201
  4. TRENTAL [Concomitant]
     Indication: PAIN IN EXTREMITY
     Dosage: 400 MG, 2X/DAY
     Route: 048
  5. NEXIUM [Concomitant]
     Dosage: 40 MG, 1X/DAY
     Route: 048
  6. NEURONTIN [Suspect]
     Indication: SKIN ULCER

REACTIONS (1)
  - DYSPNOEA EXERTIONAL [None]
